FAERS Safety Report 9341239 (Version 1)
Quarter: 2013Q2

REPORT INFORMATION
  Report Type: Spontaneous
  Country: CN (occurrence: CN)
  Receive Date: 20130611
  Receipt Date: 20130611
  Transmission Date: 20140414
  Serious: Yes (Other)
  Sender: FDA-Public Use
  Company Number: CN-ASTRAZENECA-2013SE39599

PATIENT
  Age: 840 Month
  Sex: Female

DRUGS (3)
  1. FELODIPINE [Suspect]
     Indication: HYPERTENSION
     Route: 048
     Dates: start: 20060401, end: 20120416
  2. ACARBOSE [Concomitant]
     Indication: DIABETES MELLITUS
     Route: 048
     Dates: start: 20000101, end: 20120427
  3. ACARBOSE [Concomitant]
     Indication: HYPERTENSION
     Route: 048
     Dates: start: 20000101, end: 20120427

REACTIONS (7)
  - Deafness [Recovered/Resolved]
  - Migraine [Not Recovered/Not Resolved]
  - Constipation [Recovered/Resolved]
  - Bone density decreased [Recovered/Resolved]
  - Rash [Not Recovered/Not Resolved]
  - Paraesthesia [Recovered/Resolved]
  - Drug dose omission [Unknown]
